FAERS Safety Report 6775028-7 (Version None)
Quarter: 2010Q2

REPORT INFORMATION
  Report Type: 
  Country: None (occurrence: None)
  Receive Date: 20100617
  Receipt Date: 20100614
  Transmission Date: 20101027
  Serious: Yes (Hospitalization)
  Sender: FDA-Public Use
  Company Number: A0865414A

PATIENT
  Age: 72 Year
  Sex: Male

DRUGS (2)
  1. AVANDIA [Suspect]
     Dosage: 4MG PER DAY
     Dates: start: 20041201, end: 20070801
  2. AVANDAMET [Suspect]
     Dosage: 1TAB PER DAY
     Dates: start: 20030901, end: 20041201

REACTIONS (2)
  - CORONARY ARTERY BYPASS [None]
  - POST PROCEDURAL INFECTION [None]
